FAERS Safety Report 8475309-5 (Version None)
Quarter: 2012Q2

REPORT INFORMATION
  Report Type: 
  Country: None (occurrence: None)
  Receive Date: 20120628
  Receipt Date: 20120622
  Transmission Date: 20120825
  Serious: Yes (Hospitalization)
  Sender: FDA-Public Use
  Company Number: MX-BAXTER-2012BAX009364

PATIENT
  Sex: Male
  Weight: 63 kg

DRUGS (12)
  1. INSULIN [Concomitant]
  2. VITAMIN B COMPLEX CAP [Concomitant]
     Route: 048
  3. LOSARTAN POTASSIUM [Concomitant]
     Indication: HYPERTENSION
     Route: 048
  4. FERROUS SULFATE TAB [Concomitant]
     Route: 048
  5. PRAVASTATIN [Concomitant]
     Dosage: 1 TABLET
     Route: 048
  6. CALCIUM [Concomitant]
     Route: 048
  7. METHOCLOPRAMIDE [Concomitant]
     Route: 048
  8. RANITIDINE [Concomitant]
     Route: 048
  9. DIANEAL [Suspect]
     Indication: RENAL FAILURE CHRONIC
     Dosage: 12 LITERS
     Route: 033
  10. NIFEDIPINE [Concomitant]
     Indication: HYPERTENSION
     Route: 048
  11. ISOSORBIDE [Concomitant]
     Route: 048
  12. PENTOXIFYLLINE [Concomitant]
     Route: 048

REACTIONS (4)
  - FLUID RETENTION [None]
  - PNEUMONIA [None]
  - OEDEMA PERIPHERAL [None]
  - CATHETER SITE INFECTION [None]
